FAERS Safety Report 9624876 (Version 4)
Quarter: 2014Q2

REPORT INFORMATION
  Report Type: Spontaneous
  Country: JP (occurrence: JP)
  Receive Date: 20131016
  Receipt Date: 20140519
  Transmission Date: 20141212
  Serious: Yes (Death, Life-Threatening, Hospitalization, Other)
  Sender: FDA-Public Use
  Company Number: JP-PFIZER INC-2013289611

PATIENT
  Age: 45 Year
  Sex: Male
  Weight: 63 kg

DRUGS (8)
  1. VORICONAZOLE [Suspect]
     Indication: PROPHYLAXIS
     Dosage: 400 MG, UNK
     Route: 048
  2. PREDONINE [Suspect]
     Indication: GRAFT VERSUS HOST DISEASE IN SKIN
     Dosage: 20 MG, 2X/DAY
     Route: 048
     Dates: start: 20130214, end: 20130802
  3. CELLCEPT [Suspect]
     Indication: GRAFT VERSUS HOST DISEASE IN SKIN
     Dosage: 1000 MG, 2X/DAY
     Route: 048
     Dates: start: 20130403, end: 20131105
  4. PROGRAF [Suspect]
     Indication: GRAFT VERSUS HOST DISEASE IN SKIN
     Dosage: 0.7 MG, 2X/DAY
     Route: 048
     Dates: start: 20130221, end: 20131105
  5. AMBISONE [Suspect]
     Dosage: 5 MG/KG, DAILY
     Dates: start: 20130517
  6. AMBISONE [Suspect]
     Dosage: 3 MG/KG, DAILY
     Dates: start: 20130529
  7. SAMTIREL [Suspect]
  8. FOSCARNET SODIUM [Concomitant]
     Indication: CYTOMEGALOVIRUS INFECTION
     Route: 048

REACTIONS (2)
  - Zygomycosis [Fatal]
  - Hepatic function abnormal [Not Recovered/Not Resolved]
